FAERS Safety Report 4288512-5 (Version None)
Quarter: 2004Q1

REPORT INFORMATION
  Report Type: 
  Country: None (occurrence: None)
  Receive Date: 20040205
  Receipt Date: 20040116
  Transmission Date: 20041129
  Serious: Yes (Other)
  Sender: FDA-Public Use
  Company Number: FR_040103416

PATIENT
  Age: 36 Year
  Sex: Male

DRUGS (6)
  1. ZYPREXA [Suspect]
     Dosage: 30 MG/DAY
     Dates: start: 20031024
  2. NOZINAN (LEVOMEPROMAZINE) [Concomitant]
  3. DEPAKENE [Concomitant]
  4. VALIUM [Concomitant]
  5. PARKINANE (TRIHEXYPHENIDYL HYDROCHLORIDE) [Concomitant]
  6. ACETAMINOPHEN W/ CODEINE [Concomitant]

REACTIONS (4)
  - BUNDLE BRANCH BLOCK RIGHT [None]
  - ELECTROCARDIOGRAM PR SHORTENED [None]
  - PRESCRIBED OVERDOSE [None]
  - WOLFF-PARKINSON-WHITE SYNDROME [None]
